FAERS Safety Report 7538439-8 (Version None)
Quarter: 2011Q2

REPORT INFORMATION
  Report Type: 
  Country: None (occurrence: None)
  Receive Date: 20110609
  Receipt Date: 20110525
  Transmission Date: 20111010
  Serious: Yes (Hospitalization, Other)
  Sender: FDA-Public Use
  Company Number: PHEH2007US03697

PATIENT
  Sex: Female

DRUGS (82)
  1. THEOPHYLLINE [Concomitant]
  2. NORMODYNE [Concomitant]
  3. PREVACID [Concomitant]
     Dosage: UNK
  4. REGLAN [Concomitant]
     Dosage: BEFORE MEALS
  5. ACETAMINOPHEN [Concomitant]
  6. DILAUDID [Concomitant]
  7. TAXOL [Concomitant]
  8. TAXOTERE [Concomitant]
  9. AMITIZA [Concomitant]
     Dosage: 24 MEQ, QD
     Route: 048
  10. XANAX [Concomitant]
     Dosage: UNK
     Route: 048
  11. COZAAR [Concomitant]
  12. ROBITUSSIN ^ROBINS^ [Concomitant]
  13. ZELNORM [Concomitant]
  14. K-DUR [Concomitant]
  15. ATROVENT [Concomitant]
  16. LASIX [Concomitant]
  17. OXYCONTIN [Concomitant]
     Dosage: 40 MG, BID
  18. KETEK [Concomitant]
  19. CHLORPHEDRINE SR [Concomitant]
  20. IBUPROFEN [Concomitant]
  21. VERSAPEN [Concomitant]
  22. TIOTROPIUM BROMIDE [Concomitant]
  23. POTASSIUM CHLORIDE [Concomitant]
  24. HERCEPTIN [Concomitant]
  25. CHEMOTHERAPEUTICS NOS [Concomitant]
  26. XOPENEX [Concomitant]
  27. ATIVAN [Concomitant]
  28. TORADOL [Concomitant]
     Dosage: 60 MG, ONCE/SINGLE
     Route: 030
  29. SKELAXIN [Concomitant]
  30. DURAGESIC-100 [Concomitant]
  31. DIFLUCAN [Concomitant]
     Dosage: 200 MG, QD
     Route: 048
  32. MORPHINE SULFATE [Concomitant]
  33. AREDIA [Suspect]
     Indication: BREAST CANCER
     Dosage: UNK
     Dates: start: 20050101
  34. ZYRTEC [Concomitant]
  35. DYAZIDE [Concomitant]
  36. COMPAZINE [Concomitant]
  37. OXYGEN THERAPY [Concomitant]
  38. MOBIC [Concomitant]
  39. SPIRIVA [Concomitant]
  40. WELLBUTRIN [Concomitant]
  41. OMNICEF [Concomitant]
  42. DEXAMETHASONE [Concomitant]
  43. PERCOCET [Concomitant]
  44. MONOPRIL [Concomitant]
     Indication: HYPERTENSION
  45. CELEXA [Concomitant]
     Indication: CHRONIC OBSTRUCTIVE PULMONARY DISEASE
     Dosage: UNK
     Route: 048
  46. ZITHROMAX [Concomitant]
  47. OXYMORPHONE [Concomitant]
  48. LABETALOL HCL [Concomitant]
  49. ROXICODONE [Concomitant]
  50. PREDNISONE [Concomitant]
  51. MIRALAX [Concomitant]
  52. LORTAB [Concomitant]
  53. GEMZAR [Concomitant]
  54. METHADONE HCL [Concomitant]
  55. KADIAN ^KNOLL^ [Concomitant]
  56. LOTENSIN [Concomitant]
  57. CIPRO [Concomitant]
  58. BEXTRA [Concomitant]
  59. LEVAQUIN [Concomitant]
     Dosage: 500 MG, UNK
  60. FEMARA [Concomitant]
  61. BACTRIM [Concomitant]
  62. ADRIAMYCIN PFS [Concomitant]
  63. VALIUM [Concomitant]
     Dosage: 5 MG, PRN
     Route: 048
  64. ICAR [Concomitant]
     Dosage: UNK
     Route: 048
  65. NORCO [Concomitant]
     Indication: PAIN
     Dosage: UNK
     Route: 048
  66. CLONIDINE [Concomitant]
  67. ZOMETA [Suspect]
     Indication: BREAST CANCER
     Dosage: UNK
     Dates: start: 20050101
  68. NEURONTIN [Concomitant]
  69. ALBUTEROL SULFATE AUTOHALER [Concomitant]
  70. PENICILLIN NOS [Concomitant]
  71. BACLOFEN [Concomitant]
  72. EFFEXOR [Concomitant]
  73. FLEXERIL [Concomitant]
     Dosage: UNK
  74. PROTON PUMP INHIBITORS [Concomitant]
  75. HYDROCODONE BITARTRATE [Concomitant]
  76. METHOTREXATE [Concomitant]
  77. CYTOXAN [Concomitant]
  78. CLINDAMYCIN [Concomitant]
  79. NEXIUM [Concomitant]
     Dosage: 40 MG, QD
     Route: 048
  80. PULMICORT [Concomitant]
  81. ZESTRIL [Concomitant]
  82. PRILOSEC [Concomitant]

REACTIONS (43)
  - FRACTURE NONUNION [None]
  - CANDIDIASIS [None]
  - NAUSEA [None]
  - COUGH [None]
  - OSTEOMYELITIS [None]
  - BONE DISORDER [None]
  - TREMOR [None]
  - CHRONIC OBSTRUCTIVE PULMONARY DISEASE [None]
  - BONE CANCER METASTATIC [None]
  - WHEEZING [None]
  - INJURY [None]
  - CEREBRAL ATROPHY [None]
  - JAUNDICE [None]
  - METASTASES TO BONE [None]
  - WEIGHT DECREASED [None]
  - ANXIETY [None]
  - GENERAL PHYSICAL HEALTH DETERIORATION [None]
  - ACTINOMYCOSIS [None]
  - DYSPNOEA [None]
  - METASTASES TO MENINGES [None]
  - DECREASED INTEREST [None]
  - PNEUMONITIS [None]
  - SINUSITIS [None]
  - RESPIRATORY FAILURE [None]
  - HYPERTHYROIDISM [None]
  - OSTEONECROSIS OF JAW [None]
  - PAIN [None]
  - POSTMENOPAUSE [None]
  - VOMITING [None]
  - LUNG NEOPLASM [None]
  - BRONCHITIS [None]
  - ODYNOPHAGIA [None]
  - CONSTIPATION [None]
  - CONVULSION [None]
  - BONE PAIN [None]
  - HEADACHE [None]
  - PYREXIA [None]
  - MUCOSAL INFLAMMATION [None]
  - POOR DENTAL CONDITION [None]
  - ANAEMIA [None]
  - OEDEMA PERIPHERAL [None]
  - LARYNGITIS [None]
  - MALAISE [None]
